FAERS Safety Report 7009115-5 (Version None)
Quarter: 2010Q3

REPORT INFORMATION
  Report Type: 
  Country: None (occurrence: None)
  Receive Date: 20100923
  Receipt Date: 20100917
  Transmission Date: 20110219
  Serious: Yes (Death, Life-Threatening)
  Sender: FDA-Public Use
  Company Number: JP-BAYER-200913635BYL

PATIENT
  Age: 71 Year
  Sex: Male
  Weight: 58 kg

DRUGS (19)
  1. NEXAVAR [Suspect]
     Indication: HEPATIC NEOPLASM MALIGNANT
     Dosage: TOTAL DAILY DOSE: 400 MG  UNIT DOSE: 200 MG
     Route: 048
     Dates: start: 20091001, end: 20091003
  2. NEXAVAR [Suspect]
     Dosage: TOTAL DAILY DOSE: 400 MG  UNIT DOSE: 200 MG
     Route: 048
     Dates: start: 20090824, end: 20090930
  3. DIURETICS [Suspect]
     Indication: PRODUCT USED FOR UNKNOWN INDICATION
     Route: 065
  4. SLOVASTAN [Suspect]
     Indication: ARTERIAL THROMBOSIS LIMB
     Route: 042
     Dates: start: 20091003, end: 20091005
  5. OXYCONTIN [Concomitant]
     Indication: ABDOMINAL PAIN
     Dosage: TOTAL DAILY DOSE: 45 MG
     Route: 048
     Dates: start: 20090828
  6. OXYCONTIN [Concomitant]
     Dosage: BEFORE NEXAVAR ADMINISTRATION
     Route: 048
  7. OXYCONTIN [Concomitant]
     Route: 048
     Dates: start: 20090915, end: 20091001
  8. SANDOSTATIN [Concomitant]
     Indication: ILEUS
     Route: 042
     Dates: start: 20090922, end: 20090929
  9. FRESH FROZEN PLASMA [Concomitant]
     Indication: DISSEMINATED INTRAVASCULAR COAGULATION
     Route: 042
     Dates: start: 20091005
  10. SPIRONOLACTONE [Concomitant]
     Dosage: BEFORE NEXAVAR ADMINISTRATION
     Route: 048
     Dates: end: 20091003
  11. LIVACT [Concomitant]
     Dosage: BEFORE NEXAVAR ADMINISTRATION
     Route: 048
     Dates: end: 20091003
  12. HALCION [Concomitant]
     Dosage: BEFORE NEXAVAR ADMINISTRATION
     Route: 048
     Dates: end: 20091003
  13. MOBIC [Concomitant]
     Dosage: BEFORE NEXAVAR ADMINISTRATION
     Route: 048
     Dates: end: 20090930
  14. AMLODIPINE BESYLATE [Concomitant]
     Dosage: BEFORE NEXAVAR ADMINISTRATION
     Route: 048
     Dates: end: 20091001
  15. TAKEPRON [Concomitant]
     Indication: DUODENAL ULCER
     Dosage: BEFORE NEXAVAR ADMINISTRATION
     Route: 048
     Dates: end: 20091003
  16. LASIX [Concomitant]
     Route: 048
     Dates: start: 20090828, end: 20090930
  17. ALBUMINAR [Concomitant]
     Route: 042
     Dates: start: 20090925, end: 20090927
  18. FENTANYL CITRATE [Concomitant]
     Route: 062
     Dates: start: 20091001, end: 20091008
  19. IRRADIATED PLATELET CONCENTRATE, LEUKOCYTES REDUCED [Concomitant]
     Route: 042
     Dates: start: 20091002, end: 20091002

REACTIONS (9)
  - ALTERED STATE OF CONSCIOUSNESS [None]
  - ARTERIAL THROMBOSIS LIMB [None]
  - BLOOD CREATINE PHOSPHOKINASE INCREASED [None]
  - HEPATIC FUNCTION ABNORMAL [None]
  - HEPATIC NEOPLASM MALIGNANT [None]
  - HYPONATRAEMIA [None]
  - RASH [None]
  - RENAL IMPAIRMENT [None]
  - RHABDOMYOLYSIS [None]
